FAERS Safety Report 6687803-8 (Version None)
Quarter: 2010Q2

REPORT INFORMATION
  Report Type: 
  Country: None (occurrence: None)
  Receive Date: 20100420
  Receipt Date: 20100415
  Transmission Date: 20101027
  Serious: Yes (Death, Hospitalization)
  Sender: FDA-Public Use
  Company Number: JP-ELI_LILLY_AND_COMPANY-JP201004004152

PATIENT
  Age: 64 Year
  Sex: Male

DRUGS (1)
  1. TADALAFIL [Suspect]
     Dosage: 40 MG, DAILY (1/D)
     Route: 048
     Dates: start: 20100331, end: 20100403

REACTIONS (2)
  - DEATH [None]
  - HOSPITALISATION [None]
